FAERS Safety Report 7282704-9 (Version None)
Quarter: 2011Q1

REPORT INFORMATION
  Report Type: 
  Country: None (occurrence: None)
  Receive Date: 20110125
  Receipt Date: 20110110
  Transmission Date: 20110831
  Serious: Yes (Death)
  Sender: FDA-Public Use
  Company Number: 025434

PATIENT
  Age: 20 Year
  Sex: Female

DRUGS (5)
  1. ACETAMINOPHEN AND HYDROCODONE BITARTRATE [Suspect]
     Dosage: PARENTERAL
     Route: 051
  2. OXYCODONE [Suspect]
  3. ETHANOL [Suspect]
     Dosage: PARENTERAL
     Route: 051
  4. ALPRAZOLAM [Suspect]
     Dosage: PARENTERAL
     Route: 051
  5. AMITRIPTYLINE [Suspect]
     Dosage: PARENTERAL
     Route: 051

REACTIONS (1)
  - DEATH [None]
